FAERS Safety Report 15005228 (Version 1)
Quarter: 2018Q2

REPORT INFORMATION
  Report Type: Spontaneous
  Country: US (occurrence: US)
  Receive Date: 20180525
  Receipt Date: 20180525
  Transmission Date: 20180711
  Serious: Yes (Life-Threatening, Disabling)
  Sender: FDA-Public Use
  Company Number: None

PATIENT
  Age: 58 Year
  Sex: Female
  Weight: 65.25 kg

DRUGS (6)
  1. CHLORTHALIDONE. [Concomitant]
     Active Substance: CHLORTHALIDONE
  2. LEVOTHYROXINE(SYNTHROID) [Concomitant]
  3. VITAMIN D3 [Concomitant]
     Active Substance: CHOLECALCIFEROL
  4. DILTIAZEM (EQV-TIAZAC) 120 MG [Suspect]
     Active Substance: DILTIAZEM HYDROCHLORIDE
     Indication: RAYNAUD^S PHENOMENON
     Dosage: ?          QUANTITY:1 DF DOSAGE FORM;?
     Route: 048
  5. MAGNESIUM [Concomitant]
     Active Substance: MAGNESIUM
  6. MULTI-VITAMINS [Concomitant]

REACTIONS (4)
  - Abdominal pain upper [None]
  - Blood pressure increased [None]
  - Drug ineffective [None]
  - Feeling cold [None]

NARRATIVE: CASE EVENT DATE: 20180525
